FAERS Safety Report 8880255 (Version 1)
Quarter: 2012Q4

REPORT INFORMATION
  Report Type: 
  Country: JP (occurrence: JP)
  Receive Date: 20121101
  Receipt Date: 20121101
  Transmission Date: 20130627
  Serious: Yes (Other)
  Sender: FDA-Public Use
  Company Number: JP-JNJFOC-20121015695

PATIENT
  Age: 70 Year
  Sex: Male

DRUGS (3)
  1. REMINYL [Suspect]
     Indication: PRODUCT USED FOR UNKNOWN INDICATION
     Route: 048
  2. REMINYL [Suspect]
     Indication: PRODUCT USED FOR UNKNOWN INDICATION
     Route: 048
  3. ALL OTHER THERAPEUTIC PRODUCT [Concomitant]
     Route: 065

REACTIONS (1)
  - Epilepsy [Recovered/Resolved]
